FAERS Safety Report 6527882-1 (Version None)
Quarter: 2010Q1

REPORT INFORMATION
  Report Type: 
  Country: None (occurrence: None)
  Receive Date: 20100105
  Receipt Date: 20100105
  Transmission Date: 20100710
  Serious: Yes (Hospitalization)
  Sender: FDA-Public Use
  Company Number: None

PATIENT
  Age: 69 Year
  Sex: Male

DRUGS (2)
  1. DICLOFENAC SODIUM [Suspect]
     Indication: OSTEOARTHRITIS
     Dosage: 75 MG BID PO
     Route: 048
     Dates: start: 20050617, end: 20090411
  2. ASPIRIN [Suspect]

REACTIONS (2)
  - GASTRIC HAEMORRHAGE [None]
  - LIVER DISORDER [None]
